FAERS Safety Report 8306689-9 (Version None)
Quarter: 2012Q2

REPORT INFORMATION
  Report Type: 
  Country: None (occurrence: None)
  Receive Date: 20120424
  Receipt Date: 20120417
  Transmission Date: 20120825
  Serious: Yes (Hospitalization)
  Sender: FDA-Public Use
  Company Number: US-BAYER-2012-038486

PATIENT
  Age: 25 Year
  Sex: Female
  Weight: 101.6 kg

DRUGS (14)
  1. DROSPIRENONE AND ETHINYL ESTRADIOL [Suspect]
  2. IBUPROFEN [Concomitant]
     Dosage: UNK
     Route: 048
     Dates: start: 20110713
  3. PROPOFOL [Concomitant]
  4. KLONOPIN [Concomitant]
  5. CELEXA [Concomitant]
  6. YAZ [Suspect]
  7. LORAZEPAM [Concomitant]
  8. TOPAMAX [Concomitant]
  9. KEPPRA [Concomitant]
  10. CITALOPRAM HYDROBROMIDE [Concomitant]
  11. ZOFRAN [Concomitant]
     Dosage: UNK
     Route: 048
     Dates: start: 20110713
  12. TOPAMAX [Concomitant]
  13. YASMIN [Suspect]
  14. DILANTIN [Concomitant]

REACTIONS (2)
  - CEREBRAL INFARCTION [None]
  - INTRACRANIAL VENOUS SINUS THROMBOSIS [None]
